FAERS Safety Report 9694164 (Version 2)
Quarter: 2013Q4

REPORT INFORMATION
  Report Type: Spontaneous
  Country: US (occurrence: US)
  Receive Date: 20131118
  Receipt Date: 20131126
  Transmission Date: 20140711
  Serious: Yes (Other)
  Sender: FDA-Public Use
  Company Number: US-009507513-1311USA005504

PATIENT
  Age: 71 Year
  Sex: Male

DRUGS (1)
  1. SINGULAIR [Suspect]
     Indication: ASTHMA
     Route: 048

REACTIONS (4)
  - Asthma [Unknown]
  - Lacrimation increased [Unknown]
  - Product quality issue [Unknown]
  - Rhinorrhoea [Unknown]
